FAERS Safety Report 7475525-5 (Version None)
Quarter: 2011Q2

REPORT INFORMATION
  Report Type: 
  Country: None (occurrence: None)
  Receive Date: 20110512
  Receipt Date: 20110509
  Transmission Date: 20111010
  Serious: Yes (Death, Hospitalization, Other)
  Sender: FDA-Public Use
  Company Number: PHHY2010CA56658

PATIENT
  Sex: Male

DRUGS (3)
  1. SANDOSTATIN LAR [Suspect]
     Indication: COLORECTAL CANCER
     Dosage: 40 MG, TIW
     Route: 030
     Dates: start: 20091102
  2. SANDOSTATIN LAR [Suspect]
     Dosage: 40 MG, QMO
     Route: 030
  3. SANDOSTATIN LAR [Suspect]
     Dosage: 400 MG EVERY 3 WEEKS
     Route: 030
     Dates: end: 20101208

REACTIONS (5)
  - HAEMOGLOBIN DECREASED [None]
  - ULCER HAEMORRHAGE [None]
  - HAEMATOCHEZIA [None]
  - WEIGHT DECREASED [None]
  - DEATH [None]
